FAERS Safety Report 17189834 (Version 1)
Quarter: 2019Q4

REPORT INFORMATION
  Report Type: Spontaneous
  Country: FR (occurrence: FR)
  Receive Date: 20191223
  Receipt Date: 20191223
  Transmission Date: 20200122
  Serious: Yes (Hospitalization)
  Sender: FDA-Public Use
  Company Number: FR-TEVA-2019-FR-1155686

PATIENT
  Age: 78 Year
  Sex: Female
  Weight: 100 kg

DRUGS (18)
  1. MOLSIDOMINE [Suspect]
     Active Substance: MOLSIDOMINE
     Dosage: 8 MG
     Route: 048
  2. LANTUS [Suspect]
     Active Substance: INSULIN GLARGINE
     Indication: TYPE 2 DIABETES MELLITUS
     Route: 058
  3. LOXEN L P 50 MG, GELULE A LIBERATION PROLONGEE [Suspect]
     Active Substance: NICARDIPINE HYDROCHLORIDE
     Indication: HYPERTENSION
     Dosage: 100 MG
     Route: 048
  4. DICLOFENAC [Suspect]
     Active Substance: DICLOFENAC
     Dosage: 150 MG
     Route: 048
     Dates: end: 20191112
  5. CEFTRIAXONE BASE [Suspect]
     Active Substance: CEFTRIAXONE
     Route: 065
  6. ZOPICLONE [Suspect]
     Active Substance: ZOPICLONE
     Dosage: 1 PATCH/HOUR
     Route: 023
  7. ACTISKENAN 10 MG, GELULE [Suspect]
     Active Substance: MORPHINE SULFATE
     Route: 048
  8. LORMETAZEPAM [Suspect]
     Active Substance: LORMETAZEPAM
     Dosage: 2.5 MG
     Route: 048
  9. ACIDE FOLIQUE [Suspect]
     Active Substance: FOLIC ACID
     Dosage: 10 MG
     Route: 048
  10. SKENAN [Suspect]
     Active Substance: MORPHINE SULFATE
     Dosage: 80 MG
     Route: 048
  11. PARACETAMOL [Suspect]
     Active Substance: ACETAMINOPHEN
     Route: 048
  12. DIAFUSOR 15 MG/24 HEURES, DISPOSITIF TRANSDERMIQUE [Suspect]
     Active Substance: NITROGLYCERIN
     Dosage: 15 MILLIGRAM DAILY;
     Route: 048
     Dates: end: 20191112
  13. METFORMIN [Suspect]
     Active Substance: METFORMIN HYDROCHLORIDE
     Indication: TYPE 2 DIABETES MELLITUS
     Dosage: 1000 MG
     Route: 048
     Dates: end: 20191114
  14. BETAXOLOL BASE [Suspect]
     Active Substance: BETAXOLOL
     Dosage: 20 MG
     Route: 048
     Dates: end: 20191114
  15. RAMIPRIL. [Suspect]
     Active Substance: RAMIPRIL
     Dosage: 2 MG
     Route: 048
  16. ROPINIROLE BASE [Suspect]
     Active Substance: ROPINIROLE HYDROCHLORIDE
     Dosage: 20 MG
     Route: 048
  17. OMEPRAZOLE. [Suspect]
     Active Substance: OMEPRAZOLE
     Indication: RESTLESS LEGS SYNDROME
     Dosage: 4 MG
     Route: 048
  18. FUROSEMIDE. [Suspect]
     Active Substance: FUROSEMIDE
     Dosage: 20 MG
     Route: 048

REACTIONS (1)
  - Acquired haemophilia [Not Recovered/Not Resolved]

NARRATIVE: CASE EVENT DATE: 20191010
